FAERS Safety Report 23314756 (Version 2)
Quarter: 2023Q4

REPORT INFORMATION
  Report Type: Spontaneous
  Country: US (occurrence: US)
  Receive Date: 20231219
  Receipt Date: 20231227
  Transmission Date: 20240110
  Serious: Yes (Other)
  Sender: FDA-Public Use
  Company Number: US-PFM-2023-07095

PATIENT
  Sex: Female
  Weight: 5.102 kg

DRUGS (1)
  1. HEMANGEOL [Suspect]
     Active Substance: PROPRANOLOL HYDROCHLORIDE
     Indication: Haemangioma
     Dosage: 1.5 ML, BID (2/DAY)
     Route: 048
     Dates: start: 20231201

REACTIONS (2)
  - Haematochezia [Recovering/Resolving]
  - Constipation [Recovering/Resolving]
